FAERS Safety Report 24165336 (Version 1)
Quarter: 2024Q3

REPORT INFORMATION
  Report Type: Spontaneous
  Country: US (occurrence: US)
  Receive Date: 20240802
  Receipt Date: 20240802
  Transmission Date: 20241016
  Serious: Yes (Death, Other)
  Sender: AUROBINDO
  Company Number: US-AUROBINDO-AUR-APL-2024-037790

PATIENT
  Age: 12 Year
  Sex: Male

DRUGS (6)
  1. TOBRAMYCIN [Suspect]
     Active Substance: TOBRAMYCIN\TOBRAMYCIN SULFATE
     Indication: Escherichia infection
     Dosage: 320 MILLIGRAM, DAILY (EVERY 24 HOURS )
     Route: 065
  2. POLYMYXIN B [Suspect]
     Active Substance: POLYMYXIN B
     Indication: Escherichia infection
     Dosage: 100000 MICROGRAM (LOADING DOSE)
     Route: 065
  3. POLYMYXIN B [Suspect]
     Active Substance: POLYMYXIN B
     Dosage: 12500 MICROGRAM/KILOGRAM, TWO TIMES A DAY
     Route: 065
  4. AVIBACTAM SODIUM\CEFTAZIDIME [Concomitant]
     Active Substance: AVIBACTAM SODIUM\CEFTAZIDIME
     Indication: Escherichia infection
     Dosage: 2 GRAM, 3 TIMES A DAY
     Route: 065
  5. AZTREONAM [Concomitant]
     Active Substance: AZTREONAM
     Indication: Escherichia infection
     Dosage: 2 GRAM, FOUR TIMES/DAY
     Route: 065
  6. CEFIDEROCOL [Concomitant]
     Active Substance: CEFIDEROCOL
     Indication: Escherichia infection
     Dosage: 2 GRAM, DAILY
     Route: 065

REACTIONS (1)
  - Drug ineffective [Fatal]
